FAERS Safety Report 22245103 (Version 4)
Quarter: 2023Q2

REPORT INFORMATION
  Report Type: Spontaneous
  Country: TR (occurrence: TR)
  Receive Date: 20230424
  Receipt Date: 20230627
  Transmission Date: 20230721
  Serious: Yes (Death, Hospitalization, Other)
  Sender: FDA-Public Use
  Company Number: TR-GILEAD-2023-0624101

PATIENT
  Age: 35 Year
  Sex: Female

DRUGS (10)
  1. TACROLIMUS [Suspect]
     Active Substance: TACROLIMUS
     Indication: Renal transplant
     Dosage: UNK UNK, TWICE DAILY ((1 MG IN THE MORNING AND 0.5 MG IN THE EVENING)
     Route: 065
  2. TACROLIMUS [Suspect]
     Active Substance: TACROLIMUS
     Dosage: UNK UNK, TWICE DAILY (0.5 MG)
     Route: 065
  3. AMPHOTERICIN B [Suspect]
     Active Substance: AMPHOTERICIN B
     Indication: Mucormycosis
     Route: 065
  4. PREDNISOLONE [Concomitant]
     Active Substance: PREDNISOLONE
     Indication: Renal transplant
     Route: 065
  5. MEROPENEM [Concomitant]
     Active Substance: MEROPENEM
     Indication: Product used for unknown indication
     Route: 065
  6. TIGECYCLINE [Concomitant]
     Active Substance: TIGECYCLINE
     Indication: Product used for unknown indication
     Route: 065
  7. CEFTRIAXONE [Concomitant]
     Active Substance: CEFTRIAXONE
     Indication: Product used for unknown indication
     Route: 065
  8. LEVOFLOXACIN [Concomitant]
     Active Substance: LEVOFLOXACIN
     Indication: Product used for unknown indication
     Route: 065
  9. FLUCONAZOLE [Concomitant]
     Active Substance: FLUCONAZOLE
     Indication: Oropharyngeal plaque
     Route: 065
  10. NYSTATIN [Concomitant]
     Active Substance: NYSTATIN
     Indication: Oropharyngeal plaque
     Dosage: UNK UNK, UNKNOWN FREQ.
     Route: 065

REACTIONS (6)
  - Rhinocerebral mucormycosis [Fatal]
  - Disease progression [Fatal]
  - Mucormycosis [Fatal]
  - COVID-19 [Unknown]
  - Renal failure [Unknown]
  - Drug ineffective [Unknown]
